FAERS Safety Report 5072277-3 (Version None)
Quarter: 2006Q3

REPORT INFORMATION
  Report Type: 
  Country: None (occurrence: None)
  Receive Date: 20060807
  Receipt Date: 20060726
  Transmission Date: 20061208
  Serious: Yes (Death)
  Sender: FDA-Public Use
  Company Number: US-JNJFOC-20060400615

PATIENT
  Sex: Female
  Weight: 58.97 kg

DRUGS (20)
  1. HALDOL [Suspect]
     Dosage: 2 MG EVERY 8 HOURS AS NEEDED (PRN)
     Route: 042
  2. HALDOL [Suspect]
     Indication: ANXIETY
     Dosage: UNSPECIFIED DOSE 2-3 TIMES DAILY
     Route: 042
  3. DURAGESIC-100 [Concomitant]
     Route: 062
  4. DILAUDID [Concomitant]
     Dosage: 1 MG EVERY 15 MINUTES AS NEEDED (PRN)
     Route: 042
  5. DILAUDID [Concomitant]
     Indication: DISCOMFORT
     Dosage: 0.5 MG TO 1 MG EVERY 2 HOURS AS NEEDED (PRN)
     Route: 042
  6. ATIVAN [Concomitant]
     Indication: ANXIETY
     Route: 042
  7. ATIVAN [Concomitant]
     Indication: NAUSEA
     Dosage: 0.5 MG TO 1 MG EVERY HOUR AS NEEDED (PRN)
     Route: 042
  8. BENADRYL [Concomitant]
     Dosage: 25 MG EVERY 6 HOURS AS NEEDED (PRN)
     Route: 042
  9. BENADRYL [Concomitant]
     Dosage: 25 MG EVERY 6 HOURS AS NEEDED (PRN)
     Route: 048
  10. LASIX [Concomitant]
     Dosage: AFTER EACH BLOOD UNIT
     Route: 042
  11. LASIX [Concomitant]
     Route: 042
  12. SCOPOLAMINE PATCH [Concomitant]
     Route: 062
  13. XANAX [Concomitant]
     Dosage: 1 MG THREE TIMES DAILY AS NEEDED (PRN) VIA TUBE
  14. REGLAN [Concomitant]
     Route: 042
  15. NYSTATIN [Concomitant]
     Route: 048
  16. MAGIC MOUTHWASH [Concomitant]
     Route: 048
  17. ZOSYN [Concomitant]
     Route: 042
  18. PHENERGAN HCL [Concomitant]
     Route: 042
  19. PROTONIX [Concomitant]
     Route: 042
  20. PERCOCET-5 [Concomitant]
     Dosage: 1 TO 2 CRUSHED THRU PEG EVERY 6 HOURS AS NEEDED

REACTIONS (4)
  - MEDICATION ERROR [None]
  - OVARIAN CANCER METASTATIC [None]
  - RESPIRATORY FAILURE [None]
  - WEIGHT INCREASED [None]
